FAERS Safety Report 12543490 (Version 1)
Quarter: 2016Q3

REPORT INFORMATION
  Report Type: Spontaneous
  Country: US (occurrence: None)
  Receive Date: 20160708
  Receipt Date: 20160708
  Transmission Date: 20161109
  Serious: Yes (Hospitalization)
  Sender: FDA-Public Use
  Company Number: None

PATIENT
  Age: 81 Year
  Sex: Female
  Weight: 113.4 kg

DRUGS (16)
  1. CYCLOSPORINE (RESTASIS) [Concomitant]
  2. TRAMADOL (ULTRAM) [Concomitant]
  3. ACETAMINOPHEN. [Suspect]
     Active Substance: ACETAMINOPHEN
  4. COLACE [Concomitant]
     Active Substance: DOCUSATE SODIUM
  5. WARFARIN, 5MG TEVA [Suspect]
     Active Substance: WARFARIN SODIUM
     Indication: ATRIAL FIBRILLATION
     Route: 048
  6. LANOXIN [Concomitant]
     Active Substance: DIGOXIN
  7. LIPITOR [Concomitant]
     Active Substance: ATORVASTATIN CALCIUM
  8. INSULIN LISPRO (HUMALOG) [Concomitant]
  9. LANTUS [Concomitant]
     Active Substance: INSULIN GLARGINE
  10. CALCIUM POLYCARBOPHIL (FIBER) [Concomitant]
  11. LEVOTHYROXINE (LEVOTHROID) [Concomitant]
  12. CHOLECALCIFEROL (VITAMIN D) [Concomitant]
  13. FERROUS SULFATE (FE TABS) [Concomitant]
  14. LASIX [Concomitant]
     Active Substance: FUROSEMIDE
  15. POTASSIUM CHLORIDE (K-DUR) [Concomitant]
  16. METOPROLOL (TOPROL-XL) [Concomitant]

REACTIONS (6)
  - Large intestine polyp [None]
  - Rectal polyp [None]
  - Haemorrhagic anaemia [None]
  - Lower gastrointestinal haemorrhage [None]
  - Haemoglobin decreased [None]
  - Melaena [None]

NARRATIVE: CASE EVENT DATE: 20160530
